FAERS Safety Report 10046033 (Version 4)
Quarter: 2019Q1

REPORT INFORMATION
  Report Type: Spontaneous
  Country: DE (occurrence: DE)
  Receive Date: 20140331
  Receipt Date: 20190313
  Transmission Date: 20190417
  Serious: Yes (Death, Hospitalization)
  Sender: FDA-Public Use
  Company Number: DE-UCBSA-8018342

PATIENT
  Age: 22 Year
  Sex: Female
  Weight: 59 kg

DRUGS (2)
  1. TEGRETAL [Suspect]
     Active Substance: CARBAMAZEPINE
     Indication: PARTIAL SEIZURES
     Dosage: DOSE FREQ.: DAILY
  2. KEPPRA [Suspect]
     Active Substance: LEVETIRACETAM
     Indication: PARTIAL SEIZURES
     Dosage: DOSE FREQ.: DAILY

REACTIONS (6)
  - Shock [Fatal]
  - Acute hepatic failure [Unknown]
  - Agitation [Unknown]
  - Body temperature increased [Unknown]
  - Generalised tonic-clonic seizure [Unknown]
  - Renal failure [Unknown]

NARRATIVE: CASE EVENT DATE: 200306
